FAERS Safety Report 13769516 (Version 1)
Quarter: 2017Q3

REPORT INFORMATION
  Report Type: Spontaneous
  Country: FR (occurrence: FR)
  Receive Date: 20170719
  Receipt Date: 20170719
  Transmission Date: 20171127
  Serious: Yes (Death, Hospitalization, Other)
  Sender: FDA-Public Use
  Company Number: FR-PFIZER INC-2017310578

PATIENT
  Age: 72 Year
  Sex: Male

DRUGS (9)
  1. SOLU-MEDROL [Suspect]
     Active Substance: METHYLPREDNISOLONE SODIUM SUCCINATE
     Dosage: 60 MG, WEEKLY
     Route: 042
     Dates: start: 20170224
  2. NAVELBINE [Suspect]
     Active Substance: VINORELBINE TARTRATE
     Dosage: 55 MG, WEEKLY
     Route: 042
     Dates: start: 20170224
  3. CARBOPLATIN. [Suspect]
     Active Substance: CARBOPLATIN
     Indication: BRONCHIAL CARCINOMA
     Dosage: 430 MG, SINGLE
     Route: 042
     Dates: start: 20170217, end: 20170217
  4. SOLU-MEDROL [Suspect]
     Active Substance: METHYLPREDNISOLONE SODIUM SUCCINATE
     Dosage: 60 MG, WEEKLY
     Route: 042
     Dates: start: 20170217
  5. KARDEGIC [Concomitant]
     Active Substance: ASPIRIN LYSINE
     Dosage: 160 MG, DAILY
     Route: 048
  6. ULTIBRO BREEZHALER [Concomitant]
     Active Substance: GLYCOPYRRONIUM\INDACATEROL
     Dosage: 1 DF (GLYCOPYRRONIUM BROMIDE 43 UG/ INDACATEROL MALEATE 85UG), DAILY
     Route: 055
  7. SIMVASTATIN. [Concomitant]
     Active Substance: SIMVASTATIN
     Dosage: 10 MG, DAILY
     Route: 048
  8. NAVELBINE [Suspect]
     Active Substance: VINORELBINE TARTRATE
     Indication: BRONCHIAL CARCINOMA
     Dosage: 55 MG, WEEKLY
     Route: 042
     Dates: start: 20170217
  9. MONO TILDIEM [Concomitant]
     Active Substance: DILTIAZEM HYDROCHLORIDE
     Dosage: 200 MG, DAILY
     Route: 048

REACTIONS (10)
  - Leukopenia [Fatal]
  - Pyrexia [Unknown]
  - Escherichia infection [Unknown]
  - Dehydration [Unknown]
  - General physical health deterioration [Unknown]
  - Tachycardia [Unknown]
  - Neutropenia [Fatal]
  - Septic shock [Fatal]
  - Fatigue [Unknown]
  - Multiple organ dysfunction syndrome [Fatal]

NARRATIVE: CASE EVENT DATE: 20170225
